FAERS Safety Report 5664886-5 (Version None)
Quarter: 2008Q1

REPORT INFORMATION
  Report Type: 
  Country: None (occurrence: None)
  Receive Date: 20080314
  Receipt Date: 20080304
  Transmission Date: 20080703
  Serious: Yes (Other)
  Sender: FDA-Public Use
  Company Number: CA-ELI_LILLY_AND_COMPANY-CA200803000945

PATIENT
  Sex: Male

DRUGS (3)
  1. STRATTERA [Suspect]
     Indication: ATTENTION DEFICIT/HYPERACTIVITY DISORDER
     Dosage: 20 MG, DAILY (1/D)
     Route: 048
     Dates: start: 20071201
  2. STRATTERA [Suspect]
     Dosage: 40 MG, DAILY (1/D)
     Route: 048
     Dates: end: 20080101
  3. STRATTERA [Suspect]
     Dosage: 60 MG, DAILY (1/D)
     Route: 048
     Dates: start: 20080101

REACTIONS (6)
  - HYPERAESTHESIA [None]
  - ORGASM ABNORMAL [None]
  - PARAESTHESIA [None]
  - URINARY RETENTION [None]
  - VASCULITIS [None]
  - WOUND [None]
